FAERS Safety Report 24583316 (Version 2)
Quarter: 2024Q4

REPORT INFORMATION
  Report Type: Report from Study
  Country: BE (occurrence: BE)
  Receive Date: 20241106
  Receipt Date: 20241111
  Transmission Date: 20250115
  Serious: Yes (Disabling, Other)
  Sender: NOVARTIS
  Company Number: BE-002147023-NVSC2024BE209628

PATIENT
  Age: 43 Year
  Sex: Male

DRUGS (1)
  1. LEQVIO [Suspect]
     Active Substance: INCLISIRAN SODIUM
     Indication: Hypercholesterolaemia
     Dosage: UNK (JUST ONE DOSE)
     Route: 065
     Dates: start: 20240813

REACTIONS (2)
  - Dizziness [Recovering/Resolving]
  - Visual impairment [Recovering/Resolving]

NARRATIVE: CASE EVENT DATE: 20240823
